FAERS Safety Report 7600069-7 (Version None)
Quarter: 2011Q3

REPORT INFORMATION
  Report Type: 
  Country: None (occurrence: None)
  Receive Date: 20110711
  Receipt Date: 20110627
  Transmission Date: 20111222
  Serious: No
  Sender: FDA-Public Use
  Company Number: US-ROXANE LABORATORIES, INC.-2011-RO-00908RO

PATIENT
  Age: 55 Year
  Sex: Female

DRUGS (2)
  1. BETASERON [Suspect]
  2. PREDNISONE [Suspect]

REACTIONS (5)
  - INJECTION SITE HAEMATOMA [None]
  - CONTUSION [None]
  - INJECTION SITE INFECTION [None]
  - IMPAIRED HEALING [None]
  - PAIN [None]
